FAERS Safety Report 4906699-5 (Version None)
Quarter: 2006Q1

REPORT INFORMATION
  Report Type: 
  Country: None (occurrence: None)
  Receive Date: 20060206
  Receipt Date: 20060127
  Transmission Date: 20060701
  Serious: Yes (Hospitalization, Other)
  Sender: FDA-Public Use
  Company Number: USA-2002-0000666

PATIENT
  Age: 29 Year
  Sex: Male
  Weight: 145.1 kg

DRUGS (15)
  1. OXYCONTIN [Suspect]
     Indication: PAIN
     Dosage: SEE IMAGE
     Route: 048
  2. MARIJUANA (CANNABIS) [Concomitant]
  3. SOMA [Concomitant]
  4. XANAX [Concomitant]
  5. PREVACID [Concomitant]
  6. LOPRESSOR HCT (METOPROLOL TARTRATE, HYDROCHLOROTHIAZIDE) [Concomitant]
  7. LODINE [Concomitant]
  8. ROXICODONE [Concomitant]
  9. VALIUM [Concomitant]
  10. AMBIEN [Concomitant]
  11. ZANAFLEX [Concomitant]
  12. CELEBREX [Concomitant]
  13. FLURAZEPAM [Concomitant]
  14. ATACAND [Concomitant]
  15. KLONOPIN [Concomitant]

REACTIONS (38)
  - ABDOMINAL PAIN [None]
  - ALCOHOL POISONING [None]
  - ANOREXIA [None]
  - ARTHRALGIA [None]
  - BACK PAIN [None]
  - BEREAVEMENT REACTION [None]
  - BLOOD PRESSURE INCREASED [None]
  - CONDITION AGGRAVATED [None]
  - DIZZINESS [None]
  - DRUG ABUSER [None]
  - DRUG DEPENDENCE [None]
  - DRUG INEFFECTIVE [None]
  - DRUG SCREEN NEGATIVE [None]
  - DRUG WITHDRAWAL SYNDROME [None]
  - FATIGUE [None]
  - FOREIGN BODY TRAUMA [None]
  - HEADACHE [None]
  - HYPERHIDROSIS [None]
  - INSOMNIA [None]
  - INTENTIONAL DRUG MISUSE [None]
  - INTERVERTEBRAL DISC PROTRUSION [None]
  - JOINT EFFUSION [None]
  - JOINT INJURY [None]
  - LUMBAR SPINAL STENOSIS [None]
  - MEDICATION ERROR [None]
  - MENTAL IMPAIRMENT [None]
  - NAUSEA [None]
  - OFF LABEL USE [None]
  - PAIN [None]
  - PAIN IN EXTREMITY [None]
  - POLYSUBSTANCE ABUSE [None]
  - PRURITUS [None]
  - ROAD TRAFFIC ACCIDENT [None]
  - SUICIDAL IDEATION [None]
  - TESTICULAR PAIN [None]
  - TREATMENT NONCOMPLIANCE [None]
  - VOMITING [None]
  - WRONG TECHNIQUE IN DRUG USAGE PROCESS [None]
